FAERS Safety Report 5498825-7 (Version None)
Quarter: 2007Q4

REPORT INFORMATION
  Report Type: 
  Country: None (occurrence: None)
  Receive Date: 20071026
  Receipt Date: 20070724
  Transmission Date: 20080405
  Serious: No
  Sender: FDA-Public Use
  Company Number: A0666043A

PATIENT
  Age: 47 Year
  Sex: Female

DRUGS (4)
  1. ADVAIR DISKUS 100/50 [Suspect]
     Indication: ASTHMA
     Dosage: 1PUFF TWICE PER DAY
     Route: 055
     Dates: start: 20040101
  2. THYROID TAB [Concomitant]
  3. SINGULAIR [Concomitant]
  4. ALBUTEROL [Concomitant]

REACTIONS (2)
  - ORAL CANDIDIASIS [None]
  - TOOTH DISORDER [None]
